FAERS Safety Report 9615131 (Version 1)
Quarter: 2013Q4

REPORT INFORMATION
  Report Type: Spontaneous
  Country: US (occurrence: None)
  Receive Date: 20131009
  Receipt Date: 20131009
  Transmission Date: 20140711
  Serious: No
  Sender: FDA-Public Use
  Company Number: None

PATIENT
  Age: 51 Year
  Sex: Female
  Weight: 63.5 kg

DRUGS (4)
  1. LATISSE [Suspect]
     Indication: MADAROSIS
     Dosage: 10 WEEK SUPPLY, BEDTIME, ON SKIN, EYELID ONLY
     Route: 061
     Dates: start: 20121002, end: 20131008
  2. PRILOSEC [Concomitant]
  3. AMITRIPTYLENE [Concomitant]
  4. MULTIPLE VITAMINS [Concomitant]

REACTIONS (1)
  - Blepharospasm [None]
